FAERS Safety Report 8222042-0 (Version None)
Quarter: 2012Q1

REPORT INFORMATION
  Report Type: 
  Country: None (occurrence: None)
  Receive Date: 20120320
  Receipt Date: 20120305
  Transmission Date: 20120608
  Serious: Yes (Hospitalization)
  Sender: FDA-Public Use
  Company Number: JP-WATSON-2012-04638

PATIENT
  Age: 48 Year
  Sex: Male

DRUGS (3)
  1. VOGLIBOSE [Suspect]
     Indication: BLOOD GLUCOSE INCREASED
  2. PREDNISOLONE [Suspect]
     Indication: SYSTEMIC LUPUS ERYTHEMATOSUS
     Dosage: 40 MG, DAILY
     Route: 048
  3. PREDNISOLONE [Suspect]
     Dosage: 50 MG, DAILY
     Route: 048

REACTIONS (2)
  - PNEUMATOSIS INTESTINALIS [None]
  - BLOOD GLUCOSE INCREASED [None]
